FAERS Safety Report 4472891-X (Version None)
Quarter: 2004Q4

REPORT INFORMATION
  Report Type: 
  Country: None (occurrence: None)
  Receive Date: 20041012
  Receipt Date: 20041012
  Transmission Date: 20050328
  Serious: Yes (Other)
  Sender: FDA-Public Use
  Company Number: None

PATIENT
  Sex: Female
  Weight: 121.4733 kg

DRUGS (12)
  1. TEGRETOL [Suspect]
     Indication: CONVULSION
     Dosage: 200 MG 2 BID
  2. ZOLOFT [Concomitant]
  3. SINGULAIR [Concomitant]
  4. NEXIUM [Concomitant]
  5. KLONOPIN [Concomitant]
  6. LACTULOSE [Concomitant]
  7. ZENICAL [Concomitant]
  8. CLARINEX [Concomitant]
  9. DEPAKOTE [Concomitant]
  10. NEURONTIN [Concomitant]
  11. OXYCODONE HCL [Concomitant]
  12. SYNTHROID [Concomitant]

REACTIONS (1)
  - CONVULSION [None]
